FAERS Safety Report 9681812 (Version 2)
Quarter: 2013Q4

REPORT INFORMATION
  Report Type: Spontaneous
  Country: PT (occurrence: NO)
  Receive Date: 20131111
  Receipt Date: 20131205
  Transmission Date: 20140711
  Serious: Yes (Death)
  Sender: FDA-Public Use
  Company Number: 2013SP003284

PATIENT
  Age: 24 Year
  Sex: Male

DRUGS (2)
  1. ZEBINIX (ESLICARBAZEPINE ACETATE) [Suspect]
     Indication: EPILEPSY
     Route: 048
     Dates: start: 201307, end: 201309
  2. TEGRETOL [Concomitant]
     Indication: EPILEPSY
     Dates: end: 201307

REACTIONS (1)
  - Sudden unexplained death in epilepsy [Fatal]
